FAERS Safety Report 4483669-5 (Version None)
Quarter: 2004Q4

REPORT INFORMATION
  Report Type: 
  Country: None (occurrence: None)
  Receive Date: 20041020
  Receipt Date: 20041008
  Transmission Date: 20050328
  Serious: Yes (Other)
  Sender: FDA-Public Use
  Company Number: 2004076785

PATIENT
  Sex: Female

DRUGS (3)
  1. LIPITOR [Suspect]
     Indication: ILL-DEFINED DISORDER
     Dosage: 10 MG (10 MG, 1 IN 1D)
  2. VALDECOXIB [Suspect]
     Indication: OSTEOARTHRITIS
     Dosage: 20 MG (10 MG, 1 IN 1 D)
  3. CARVEDILOL [Concomitant]

REACTIONS (2)
  - AORTIC STENOSIS [None]
  - DRUG EFFECT DECREASED [None]
